FAERS Safety Report 5068831-5 (Version None)
Quarter: 2006Q3

REPORT INFORMATION
  Report Type: 
  Country: None (occurrence: None)
  Receive Date: 20060802
  Receipt Date: 20060426
  Transmission Date: 20061208
  Serious: No
  Sender: FDA-Public Use
  Company Number: US-BRISTOL-MYERS SQUIBB COMPANY-13356886

PATIENT
  Age: 64 Year
  Sex: Female
  Weight: 147 kg

DRUGS (12)
  1. COUMADIN [Suspect]
     Indication: ATRIAL FIBRILLATION
     Dosage: DOSE:  STARTED ON 2.5 MG DAILY; ON 25-APR-2005 INCREASED TO 2.5 MG M,W,F + 5 MG T,TH,SAT, SUN
     Dates: start: 20060401
  2. MOBIC [Concomitant]
  3. LISINOPRIL [Concomitant]
  4. CARTIA XT [Concomitant]
  5. METOPROLOL [Concomitant]
  6. MULTI-VITAMIN [Concomitant]
  7. RUTIN [Concomitant]
  8. ACTIGALL [Concomitant]
  9. BETACAROTENE [Concomitant]
  10. ACIDOPHILUS [Concomitant]
  11. L-GLUTAMINE [Concomitant]
  12. GLUCOSAMINE [Concomitant]

REACTIONS (3)
  - PROTHROMBIN TIME RATIO INCREASED [None]
  - STOMACH DISCOMFORT [None]
  - URINARY TRACT INFECTION [None]
